FAERS Safety Report 5161060-6 (Version None)
Quarter: 2006Q4

REPORT INFORMATION
  Report Type: 
  Country: None (occurrence: None)
  Receive Date: 20061121
  Receipt Date: 20061109
  Transmission Date: 20070319
  Serious: Yes (Death)
  Sender: FDA-Public Use
  Company Number: 2004106809

PATIENT
  Age: 24 Year
  Sex: Male

DRUGS (11)
  1. NEURONTIN [Suspect]
     Indication: BACK PAIN
     Dates: start: 20020705, end: 20021112
  2. MORPHINE [Suspect]
     Indication: PAIN
     Dosage: 3 IN 1 D
     Dates: end: 20021112
  3. DURAGESIC-100 [Suspect]
     Indication: PAIN
     Dosage: 175 MG (1 IN 1 D), TRANSDERMAL
     Route: 062
     Dates: start: 20020814, end: 20021112
  4. HEROIN (DIAMORPHINE) [Suspect]
     Indication: ILL-DEFINED DISORDER
  5. CITALOPRAM HYDROBROMIDE [Suspect]
     Indication: ILL-DEFINED DISORDER
  6. PROPOXYPHENE HCL [Suspect]
     Indication: ILL-DEFINED DISORDER
  7. ALPRAZOLAM [Concomitant]
  8. CLONAZEPAM [Concomitant]
  9. DIAZEPAM [Concomitant]
  10. EFFEXOR XR [Concomitant]
  11. OXYCODONE HCL [Concomitant]

REACTIONS (14)
  - APNOEA [None]
  - ARTERIOSCLEROSIS [None]
  - BRAIN OEDEMA [None]
  - COMPLETED SUICIDE [None]
  - INTENTIONAL OVERDOSE [None]
  - LOSS OF CONSCIOUSNESS [None]
  - MENTAL DISORDER [None]
  - MOUTH HAEMORRHAGE [None]
  - MULTIPLE DRUG OVERDOSE [None]
  - PULMONARY CONGESTION [None]
  - PULMONARY OEDEMA [None]
  - REFUSAL OF TREATMENT BY PATIENT [None]
  - VENTRICULAR HYPERTROPHY [None]
  - VOMITING [None]
